FAERS Safety Report 18559770 (Version 3)
Quarter: 2021Q2

REPORT INFORMATION
  Report Type: Report from Study
  Country: US (occurrence: US)
  Receive Date: 20201130
  Receipt Date: 20210420
  Transmission Date: 20210717
  Serious: Yes (Other)
  Sender: FDA-Public Use
  Company Number: US-TAKEDA-2020TUS052719

PATIENT
  Sex: Female
  Weight: 74.83 kg

DRUGS (34)
  1. DIPHENHYDRAMINE. [Concomitant]
     Active Substance: DIPHENHYDRAMINE
  2. PREDNISONE. [Concomitant]
     Active Substance: PREDNISONE
  3. ELIQUIS [Concomitant]
     Active Substance: APIXABAN
  4. PRAVASTATIN SODIUM. [Concomitant]
     Active Substance: PRAVASTATIN SODIUM
  5. ALLOPURINOL. [Concomitant]
     Active Substance: ALLOPURINOL
  6. COENZYME Q10 [Concomitant]
     Active Substance: DIETARY SUPPLEMENT\UBIDECARENONE
  7. ALPHA LIPOIC ACID [Concomitant]
     Active Substance: .ALPHA.-LIPOIC ACID
  8. HUMAN NORMAL IMMUNOGLOBULIN; LIQUID [Suspect]
     Active Substance: HUMAN IMMUNOGLOBULIN G
     Indication: IMMUNODEFICIENCY COMMON VARIABLE
     Dosage: 10 GRAM, 1/WEEK
     Route: 058
     Dates: start: 20190406
  9. OXYGEN. [Concomitant]
     Active Substance: OXYGEN
  10. ACETAMINOPHEN. [Concomitant]
     Active Substance: ACETAMINOPHEN
  11. SYMBICORT [Concomitant]
     Active Substance: BUDESONIDE\FORMOTEROL FUMARATE DIHYDRATE
  12. TRETINOIN. [Concomitant]
     Active Substance: TRETINOIN
  13. VITAMIN D3 [Concomitant]
     Active Substance: CHOLECALCIFEROL
  14. PLAVIX [Concomitant]
     Active Substance: CLOPIDOGREL BISULFATE
  15. PROTONIX [OMEPRAZOLE] [Concomitant]
     Active Substance: OMEPRAZOLE
  16. FLORAJEN3 [Concomitant]
  17. EPINEPHRINE. [Concomitant]
     Active Substance: EPINEPHRINE
  18. LASIX [Concomitant]
     Active Substance: FUROSEMIDE
  19. LIDOCAINE [LIDOCAINE HYDROCHLORIDE] [Concomitant]
     Active Substance: LIDOCAINE HYDROCHLORIDE
  20. OXYCODONE AND ACETAMINOPHEN [Concomitant]
     Active Substance: ACETAMINOPHEN\OXYCODONE HYDROCHLORIDE
  21. SINGULAIR [Concomitant]
     Active Substance: MONTELUKAST SODIUM
  22. GARLIC [ALLIUM SATIVUM] [Concomitant]
     Active Substance: GARLIC
  23. MIRALAX [Concomitant]
     Active Substance: POLYETHYLENE GLYCOL 3350
  24. LANTUS [Concomitant]
     Active Substance: INSULIN GLARGINE
  25. NASACORT [Concomitant]
     Active Substance: TRIAMCINOLONE ACETONIDE
  26. MUCINEX [Concomitant]
     Active Substance: GUAIFENESIN
  27. FOSAMAX [Concomitant]
     Active Substance: ALENDRONATE SODIUM
  28. VENTOLIN [Concomitant]
     Active Substance: ALBUTEROL SULFATE
  29. ALBUTEROL SULFATE. [Concomitant]
     Active Substance: ALBUTEROL SULFATE
  30. POTASSIUM [Concomitant]
     Active Substance: POTASSIUM
  31. GLUTATHIONE [Concomitant]
     Active Substance: GLUTATHIONE
  32. VICTOZA [Concomitant]
     Active Substance: LIRAGLUTIDE
  33. NOVOLOG [Concomitant]
     Active Substance: INSULIN ASPART
  34. SUDOGEST [Concomitant]
     Active Substance: PSEUDOEPHEDRINE HYDROCHLORIDE

REACTIONS (7)
  - Cardiac failure congestive [Unknown]
  - Nausea [Unknown]
  - Illness [Unknown]
  - Cardiac infection [Unknown]
  - Atrial fibrillation [Unknown]
  - Pleural effusion [Unknown]
  - Decreased appetite [Unknown]
